FAERS Safety Report 8306563-8 (Version None)
Quarter: 2012Q1

REPORT INFORMATION
  Report Type: 
  Country: None (occurrence: None)
  Receive Date: 20120326
  Receipt Date: 20110302
  Transmission Date: 20120608
  Serious: Yes (Other)
  Sender: FDA-Public Use
  Company Number: PHHY2011US18307

PATIENT
  Age: 73 Year
  Sex: Male

DRUGS (1)
  1. TASIGNA [Suspect]
     Indication: CHRONIC MYELOID LEUKAEMIA
     Dosage: 400 MG BID ORAL, 1 TAB EVERY OTHER DAY, DAILY ORAL
     Route: 048
     Dates: start: 20101223

REACTIONS (3)
  - RENAL FAILURE [None]
  - DYSPNOEA [None]
  - CARDIAC FAILURE CONGESTIVE [None]
